FAERS Safety Report 6898141-2 (Version None)
Quarter: 2010Q3

REPORT INFORMATION
  Report Type: 
  Country: None (occurrence: None)
  Receive Date: 20100802
  Receipt Date: 20070910
  Transmission Date: 20110219
  Serious: No
  Sender: FDA-Public Use
  Company Number: US-PFIZER INC-2007072396

PATIENT
  Sex: Female
  Weight: 113.4 kg

DRUGS (6)
  1. LYRICA [Suspect]
     Indication: DIABETIC NEUROPATHY
     Dates: start: 20070801
  2. FUROSEMIDE [Concomitant]
     Indication: OEDEMA PERIPHERAL
  3. ATENOLOL [Concomitant]
  4. GLUCOPHAGE [Concomitant]
  5. ACETYLSALICYLIC ACID SRT [Concomitant]
  6. HYDROCHLOROTHIAZIDE [Concomitant]
     Indication: BLOOD PRESSURE

REACTIONS (2)
  - CHROMATURIA [None]
  - DRUG INEFFECTIVE [None]
